FAERS Safety Report 4678542-3 (Version None)
Quarter: 2005Q2

REPORT INFORMATION
  Report Type: 
  Country: None (occurrence: None)
  Receive Date: 20050601
  Receipt Date: 20050523
  Transmission Date: 20051028
  Serious: Yes (Hospitalization)
  Sender: FDA-Public Use
  Company Number: US-JNJFOC-20050506155

PATIENT

DRUGS (1)
  1. RISPERDAL [Suspect]
     Indication: DRUG USE FOR UNKNOWN INDICATION
     Dosage: 6-7 MG/DAY (IN THREE DIVIDED DOSES)

REACTIONS (5)
  - DYSTONIA [None]
  - FALL [None]
  - MUSCLE NECROSIS [None]
  - NECK INJURY [None]
  - NERVE INJURY [None]
